FAERS Safety Report 17110575 (Version 1)
Quarter: 2019Q4

REPORT INFORMATION
  Report Type: Spontaneous
  Country: US (occurrence: US)
  Receive Date: 20191203
  Receipt Date: 20191203
  Transmission Date: 20200122
  Serious: Yes (Death, Life-Threatening, Other)
  Sender: FDA-Public Use
  Company Number: None

PATIENT
  Age: 18 Year
  Sex: Female
  Weight: 63.5 kg

DRUGS (1)
  1. NEXPLANON [Suspect]
     Active Substance: ETONOGESTREL

REACTIONS (7)
  - Abortion induced [None]
  - Pregnancy with contraceptive device [None]
  - Thrombosis [None]
  - Exposure during pregnancy [None]
  - Subchorionic haemorrhage [None]
  - Amniorrhoea [None]
  - Maternal condition affecting foetus [None]

NARRATIVE: CASE EVENT DATE: 20190901
